FAERS Safety Report 9009878 (Version 1)
Quarter: 2013Q1

REPORT INFORMATION
  Report Type: Spontaneous
  Country: FR (occurrence: FR)
  Receive Date: 20130110
  Receipt Date: 20130110
  Transmission Date: 20140127
  Serious: Yes (Hospitalization)
  Sender: FDA-Public Use
  Company Number: FR-SANOFI-AVENTIS-2013SA001299

PATIENT
  Age: 65 Year
  Sex: Male

DRUGS (3)
  1. TAXOTERE [Suspect]
     Indication: LARYNGEAL NEOPLASM
     Route: 042
     Dates: start: 201201, end: 20120404
  2. CISPLATIN [Suspect]
     Indication: LARYNGEAL NEOPLASM
     Route: 042
     Dates: start: 201201, end: 20120404
  3. FLUOROURACIL [Suspect]
     Indication: LARYNGEAL NEOPLASM
     Route: 042
     Dates: start: 201201, end: 20120404

REACTIONS (5)
  - Cerebellar syndrome [Not Recovered/Not Resolved]
  - Balance disorder [Not Recovered/Not Resolved]
  - Gait disturbance [Not Recovered/Not Resolved]
  - Dysarthria [Recovered/Resolved]
  - Motor dysfunction [Recovered/Resolved]
